FAERS Safety Report 5972739-8 (Version None)
Quarter: 2008Q4

REPORT INFORMATION
  Report Type: 
  Country: None (occurrence: None)
  Receive Date: 20081201
  Receipt Date: 20081120
  Transmission Date: 20090506
  Serious: Yes (Hospitalization)
  Sender: FDA-Public Use
  Company Number: JP-EISAI MEDICAL RESEARCH-E2090-00567-SPO-JP

PATIENT
  Sex: Female

DRUGS (5)
  1. EXCEGRAN [Suspect]
     Indication: EPILEPSY
     Route: 048
     Dates: start: 20081004, end: 20081007
  2. PHENOBARBITAL TAB [Suspect]
     Indication: EPILEPSY
     Dosage: UNKNOWN
     Route: 048
     Dates: start: 20080912, end: 20081001
  3. NEOMALLERMIN [Concomitant]
     Indication: DRUG ERUPTION
     Route: 048
     Dates: start: 20081002, end: 20081008
  4. NOVARAPID [Concomitant]
     Indication: DIABETES MELLITUS
     Route: 058
     Dates: start: 20080901
  5. LEVEMIR [Concomitant]
     Indication: DIABETES MELLITUS
     Route: 058
     Dates: start: 20080901

REACTIONS (3)
  - HEPATIC FUNCTION ABNORMAL [None]
  - RASH [None]
  - WHITE BLOOD CELL COUNT DECREASED [None]
